FAERS Safety Report 9786758 (Version 2)
Quarter: 2013Q4

REPORT INFORMATION
  Report Type: Spontaneous
  Country: IT (occurrence: IT)
  Receive Date: 20131227
  Receipt Date: 20131227
  Transmission Date: 20140711
  Serious: Yes (Other)
  Sender: FDA-Public Use
  Company Number: IT-ABBVIE-13P-087-1177864-00

PATIENT
  Age: 70 Year
  Sex: Male

DRUGS (2)
  1. LEUPRORELIN [Suspect]
     Indication: HORMONE THERAPY
  2. BICALUTAMIDE [Suspect]
     Indication: HORMONE THERAPY

REACTIONS (1)
  - Meningioma [Unknown]
